FAERS Safety Report 14178796 (Version 1)
Quarter: 2017Q4

REPORT INFORMATION
  Report Type: Spontaneous
  Country: US (occurrence: US)
  Receive Date: 20171110
  Receipt Date: 20171110
  Transmission Date: 20180321
  Serious: No
  Sender: FDA-Public Use
  Company Number: US-PFIZER INC-2017484039

PATIENT
  Age: 56 Year
  Sex: Female

DRUGS (4)
  1. PREMARIN [Suspect]
     Active Substance: ESTROGENS, CONJUGATED
     Indication: HORMONE REPLACEMENT THERAPY
     Dosage: ONCE EVERY TWO WEEKS
     Dates: end: 2013
  2. PREMARIN [Suspect]
     Active Substance: ESTROGENS, CONJUGATED
     Dosage: THREE TIMES A WEEK
  3. LEXAPRO [Concomitant]
     Active Substance: ESCITALOPRAM OXALATE
     Dosage: 5 MG, UNK
     Dates: end: 2011
  4. PREMARIN [Suspect]
     Active Substance: ESTROGENS, CONJUGATED
     Dosage: TWO TIMES A WEEK

REACTIONS (6)
  - Depression [Unknown]
  - Insomnia [Unknown]
  - Expired product administered [Unknown]
  - Night sweats [Unknown]
  - Anger [Unknown]
  - Tremor [Unknown]
